FAERS Safety Report 7665121-9 (Version None)
Quarter: 2011Q3

REPORT INFORMATION
  Report Type: 
  Country: None (occurrence: None)
  Receive Date: 20110806
  Receipt Date: 20110429
  Transmission Date: 20111222
  Serious: No
  Sender: FDA-Public Use
  Company Number: US-ABBOTT-11P-163-0722684-00

PATIENT
  Sex: Male
  Weight: 104.87 kg

DRUGS (6)
  1. UNKNOWN MEDICATION [Concomitant]
     Indication: DIABETES MELLITUS
  2. LIPITOR [Concomitant]
     Indication: PRODUCT USED FOR UNKNOWN INDICATION
  3. ASPIRIN [Concomitant]
     Indication: PRODUCT USED FOR UNKNOWN INDICATION
  4. NIASPAN [Suspect]
     Indication: BLOOD CHOLESTEROL
  5. NIASPAN [Suspect]
     Indication: BLOOD TRIGLYCERIDES INCREASED
     Dates: start: 20100101
  6. UNKNOWN MEDICATION [Concomitant]
     Indication: BLOOD PRESSURE

REACTIONS (2)
  - FLUSHING [None]
  - PRURITUS [None]
